FAERS Safety Report 8076787-6 (Version None)
Quarter: 2011Q4

REPORT INFORMATION
  Report Type: 
  Country: None (occurrence: None)
  Receive Date: 20111221
  Receipt Date: 20110325
  Transmission Date: 20120403
  Serious: Yes (Other)
  Sender: FDA-Public Use
  Company Number: PHHY2011US14924

PATIENT
  Age: 76 Year
  Sex: Female

DRUGS (6)
  1. CHLOROCID (CHLORAMPHENICOL) [Concomitant]
  2. SOTALOL HCL [Concomitant]
  3. SLO-MAG (MAGNESIUM CHLORIDE ANHYDROUS) [Concomitant]
  4. LEVOTHYROXINE SODIUM [Concomitant]
  5. EXJADE [Suspect]
     Indication: IRON OVERLOAD
     Dosage: 1500 MG, DAILY, ORAL 1000 MG DAILY, ORAL
     Route: 048
     Dates: start: 20110216
  6. EXJADE [Suspect]
     Indication: HAEMOCHROMATOSIS
     Dosage: 1500 MG, DAILY, ORAL 1000 MG DAILY, ORAL
     Route: 048
     Dates: start: 20110216

REACTIONS (7)
  - VOMITING [None]
  - ASTHENIA [None]
  - RASH MACULAR [None]
  - DIARRHOEA [None]
  - ABDOMINAL PAIN [None]
  - FATIGUE [None]
  - SOMNOLENCE [None]
